FAERS Safety Report 7881185-1 (Version None)
Quarter: 2011Q4

REPORT INFORMATION
  Report Type: 
  Country: None (occurrence: None)
  Receive Date: 20111101
  Receipt Date: 20110525
  Transmission Date: 20120403
  Serious: No
  Sender: FDA-Public Use
  Company Number: US-AMGEN-USASP2011000926

PATIENT
  Age: 66 Year
  Sex: Female
  Weight: 56.7 kg

DRUGS (4)
  1. ENBREL [Suspect]
     Dosage: 50 MG, QWK
     Dates: start: 20100817
  2. ENBREL [Suspect]
     Dosage: 50 MG, QWK
     Dates: start: 20100817
  3. ENBREL [Suspect]
     Indication: RHEUMATOID ARTHRITIS
     Dosage: 50 MG, QWK
     Dates: start: 20100817
  4. ENBREL [Suspect]
     Dosage: 50 MG, QWK
     Dates: start: 20100817

REACTIONS (4)
  - INJECTION SITE HAEMATOMA [None]
  - HYPERACUSIS [None]
  - PAIN [None]
  - INJECTION SITE PAIN [None]
